FAERS Safety Report 13114557 (Version 1)
Quarter: 2017Q1

REPORT INFORMATION
  Report Type: Spontaneous
  Country: US (occurrence: US)
  Receive Date: 20170113
  Receipt Date: 20170113
  Transmission Date: 20170428
  Serious: No
  Sender: FDA-Public Use
  Company Number: US-UNICHEM LABORATORIES LIMITED-UCM201604-000064

PATIENT
  Age: 75 Year
  Sex: Male

DRUGS (2)
  1. MELOXICAM. [Suspect]
     Active Substance: MELOXICAM
     Indication: ARTHRALGIA
     Dates: start: 20160412, end: 20160413
  2. MELOXICAM. [Suspect]
     Active Substance: MELOXICAM
     Indication: BACK PAIN
     Dates: start: 20160414, end: 20160417

REACTIONS (6)
  - Insomnia [Recovered/Resolved]
  - Product use issue [Unknown]
  - Myalgia [Recovering/Resolving]
  - Wrong technique in product usage process [Unknown]
  - Diarrhoea [Recovered/Resolved]
  - Nausea [Recovered/Resolved]

NARRATIVE: CASE EVENT DATE: 20160412
